FAERS Safety Report 19969583 (Version 1)
Quarter: 2021Q4

REPORT INFORMATION
  Report Type: Spontaneous
  Country: FR (occurrence: FR)
  Receive Date: 20211019
  Receipt Date: 20211019
  Transmission Date: 20220303
  Serious: Yes (Hospitalization, Congenital Anomaly, Other)
  Sender: FDA-Public Use
  Company Number: FR-ABBVIE-21K-056-4119279-00

PATIENT
  Sex: Female

DRUGS (2)
  1. VALPROATE SODIUM [Suspect]
     Active Substance: VALPROATE SODIUM
     Indication: Maternal exposure timing unspecified
     Route: 064
  2. ORTENAL [Suspect]
     Active Substance: AMPHETAMINE SULFATE\PHENOBARBITAL
     Indication: Product used for unknown indication
     Route: 064

REACTIONS (34)
  - Gastroenteritis [Unknown]
  - Pneumonia [Unknown]
  - Autism spectrum disorder [Unknown]
  - Weight decreased [Unknown]
  - Vomiting [Unknown]
  - Growth retardation [Unknown]
  - Weight decrease neonatal [Unknown]
  - Astigmatism [Unknown]
  - Dysmorphism [Unknown]
  - Lordosis [Unknown]
  - Developmental delay [Unknown]
  - Psychomotor retardation [Unknown]
  - Mental disorder [Unknown]
  - Personal relationship issue [Unknown]
  - Emotional disorder [Unknown]
  - Social avoidant behaviour [Unknown]
  - Learning disorder [Unknown]
  - Disturbance in attention [Unknown]
  - Myopia [Unknown]
  - Visual acuity reduced [Unknown]
  - Gastrooesophageal reflux disease [Unknown]
  - Feeding disorder [Unknown]
  - Visual impairment [Unknown]
  - Sleep disorder [Unknown]
  - Lymphadenopathy [Unknown]
  - Abdominal pain [Unknown]
  - Weight decreased [Unknown]
  - Ear congestion [Unknown]
  - Insomnia [Unknown]
  - Viral diarrhoea [Unknown]
  - Abnormal sleep-related event [Unknown]
  - Staphylococcus test positive [Unknown]
  - Pharyngeal erythema [Unknown]
  - Foetal exposure during pregnancy [Unknown]

NARRATIVE: CASE EVENT DATE: 19840801
